FAERS Safety Report 5189625-6 (Version None)
Quarter: 2006Q4

REPORT INFORMATION
  Report Type: 
  Country: None (occurrence: None)
  Receive Date: 20061221
  Receipt Date: 20051216
  Transmission Date: 20070319
  Serious: No
  Sender: FDA-Public Use
  Company Number: US-AMGEN-US161862

PATIENT
  Sex: Male
  Weight: 89.9 kg

DRUGS (3)
  1. ENBREL [Suspect]
     Indication: PSORIATIC ARTHROPATHY
     Route: 058
     Dates: start: 20051003
  2. DIOVAN [Concomitant]
     Route: 065
  3. AVANDIA [Concomitant]
     Route: 065

REACTIONS (1)
  - PAROTID GLAND ENLARGEMENT [None]
